FAERS Safety Report 18542809 (Version 2)
Quarter: 2021Q1

REPORT INFORMATION
  Report Type: Report from Study
  Country: US (occurrence: US)
  Receive Date: 20201124
  Receipt Date: 20210129
  Transmission Date: 20210419
  Serious: Yes (Other)
  Sender: FDA-Public Use
  Company Number: US-JNJFOC-20201136857

PATIENT
  Age: 24 Year
  Sex: Female
  Weight: 59.02 kg

DRUGS (10)
  1. SPRAVATO [Suspect]
     Active Substance: ESKETAMINE
     Dates: start: 20201111
  2. VRAYLAR [Concomitant]
     Active Substance: CARIPRAZINE
     Indication: BORDERLINE PERSONALITY DISORDER
  3. SPRAVATO [Suspect]
     Active Substance: ESKETAMINE
     Indication: DEPRESSION
     Dosage: TOTAL 6 DOSES
     Dates: start: 20201019, end: 20201105
  4. DIAZEPAM. [Concomitant]
     Active Substance: DIAZEPAM
     Indication: PANIC DISORDER
  5. PROPRANOLOL [Concomitant]
     Active Substance: PROPRANOLOL HYDROCHLORIDE
     Indication: PANIC DISORDER
  6. VIIBRYD [Concomitant]
     Active Substance: VILAZODONE HYDROCHLORIDE
     Indication: MAJOR DEPRESSION
  7. SEROQUEL [Concomitant]
     Active Substance: QUETIAPINE FUMARATE
     Indication: POST-TRAUMATIC STRESS DISORDER
  8. ANTABUSE [Concomitant]
     Active Substance: DISULFIRAM
     Indication: ALCOHOL USE DISORDER
  9. VIVITROL [Concomitant]
     Active Substance: NALTREXONE
     Indication: ALCOHOL USE DISORDER
  10. QUETIAPINE FUMARATE. [Concomitant]
     Active Substance: QUETIAPINE FUMARATE
     Indication: BORDERLINE PERSONALITY DISORDER

REACTIONS (2)
  - Dissociation [Recovered/Resolved]
  - Panic attack [Recovered/Resolved]

NARRATIVE: CASE EVENT DATE: 20201111
